FAERS Safety Report 5240887-6 (Version None)
Quarter: 2007Q1

REPORT INFORMATION
  Report Type: 
  Country: None (occurrence: None)
  Receive Date: 20061208
  Receipt Date: 20050427
  Transmission Date: 20070707
  Serious: Yes (Other)
  Sender: FDA-Public Use
  Company Number: 2005UW06517

PATIENT
  Age: 69 Year
  Sex: Male
  Weight: 89.811 kg

DRUGS (3)
  1. CRESTOR [Suspect]
     Dosage: 5 MG QD PO
     Route: 048
     Dates: start: 20050421
  2. ATENOLOL [Concomitant]
  3. DIOVAN [Concomitant]

REACTIONS (2)
  - CONFUSIONAL STATE [None]
  - HEADACHE [None]
